FAERS Safety Report 10623421 (Version 3)
Quarter: 2015Q2

REPORT INFORMATION
  Report Type: Spontaneous
  Country: US (occurrence: US)
  Receive Date: 20141203
  Receipt Date: 20150413
  Transmission Date: 20150821
  Serious: Yes (Other)
  Sender: FDA-Public Use
  Company Number: US-BAYER-2014-178485

PATIENT
  Age: 30 Year
  Sex: Female
  Weight: 94.79 kg

DRUGS (4)
  1. SERTRALINE [Concomitant]
     Active Substance: SERTRALINE HYDROCHLORIDE
     Dosage: 100 MG, QD
  2. MIRENA [Suspect]
     Active Substance: LEVONORGESTREL
     Indication: CONTRACEPTION
     Dosage: 20 MCG/24HR, CONT
     Route: 015
     Dates: start: 20131104, end: 2014
  3. MIRENA [Suspect]
     Active Substance: LEVONORGESTREL
     Indication: CONTRACEPTION
     Dosage: 20 MCG/24HR, CONT
     Route: 015
     Dates: start: 200901, end: 20131104
  4. ATORVASTATIN CALCIUM. [Concomitant]
     Active Substance: ATORVASTATIN CALCIUM
     Dosage: 10 MG, QD

REACTIONS (12)
  - Metrorrhagia [None]
  - Migraine [None]
  - Vaginal haemorrhage [None]
  - Fall [None]
  - Headache [None]
  - Emotional disorder [None]
  - Depression [None]
  - Device expulsion [None]
  - Contusion [None]
  - Abdominal pain lower [None]
  - Genital haemorrhage [None]
  - Amenorrhoea [None]

NARRATIVE: CASE EVENT DATE: 20140306
